FAERS Safety Report 4335263-4 (Version None)
Quarter: 2004Q2

REPORT INFORMATION
  Report Type: 
  Country: None (occurrence: None)
  Receive Date: 20040408
  Receipt Date: 20040319
  Transmission Date: 20050107
  Serious: Yes (Hospitalization, Other)
  Sender: FDA-Public Use
  Company Number: US-MERCK-0403USA01935

PATIENT
  Age: 56 Year
  Sex: Male

DRUGS (10)
  1. VASOTEC [Concomitant]
     Route: 065
     Dates: start: 19990101, end: 20040204
  2. LASIX [Concomitant]
     Route: 065
     Dates: start: 19980101
  3. NEURONTIN [Concomitant]
     Route: 065
     Dates: start: 19990101
  4. LANTUS [Concomitant]
     Route: 065
  5. TOPROL-XL [Concomitant]
     Route: 065
     Dates: start: 19990101
  6. FLOMAX [Concomitant]
     Route: 065
     Dates: start: 20010101
  7. QUININE SULFATE [Concomitant]
     Route: 065
     Dates: start: 19760101
  8. VIOXX [Suspect]
     Route: 048
     Dates: start: 19990101, end: 20040204
  9. ZOLOFT [Concomitant]
     Route: 065
     Dates: start: 20000101
  10. ZOCOR [Concomitant]
     Route: 048
     Dates: start: 20000101

REACTIONS (3)
  - BLOOD POTASSIUM INCREASED [None]
  - MUSCULOSKELETAL DISORDER [None]
  - RENAL FAILURE [None]
